FAERS Safety Report 4393908-7 (Version None)
Quarter: 2004Q3

REPORT INFORMATION
  Report Type: 
  Country: None (occurrence: None)
  Receive Date: 20040702
  Receipt Date: 20040616
  Transmission Date: 20050211
  Serious: Yes (Hospitalization)
  Sender: FDA-Public Use
  Company Number: DSA_24583_2004

PATIENT
  Age: 67 Year
  Sex: Male

DRUGS (6)
  1. ENALAPRIL MALEATE [Suspect]
     Dosage: 10 MG BID PO
     Route: 048
     Dates: end: 20040526
  2. TERAZOSIN HCL [Suspect]
     Dosage: DF
  3. METFORMIN HCL [Concomitant]
  4. LIPITOR [Concomitant]
  5. NEXIUM [Concomitant]
  6. PANCREAS [Concomitant]

REACTIONS (4)
  - FALL [None]
  - HYPOTENSION [None]
  - NIGHT SWEATS [None]
  - URINARY TRACT INFECTION [None]
